FAERS Safety Report 9944567 (Version 1)
Quarter: 2014Q1

REPORT INFORMATION
  Report Type: Report from Study
  Country: US (occurrence: US)
  Receive Date: 20140303
  Receipt Date: 20140303
  Transmission Date: 20141002
  Serious: No
  Sender: FDA-Public Use
  Company Number: US-ABBVIE-13P-163-1053285-00

PATIENT
  Age: 55 Year
  Sex: Female

DRUGS (2)
  1. HUMIRA [Suspect]
     Indication: PSORIASIS
     Dosage: STARTER DOSE
     Dates: start: 20130212
  2. TOPICAL CREAM UNKNOWN NAME [Concomitant]
     Dosage: ONCE DAILY
     Route: 061

REACTIONS (2)
  - Sinus congestion [Not Recovered/Not Resolved]
  - Dysphonia [Not Recovered/Not Resolved]
